FAERS Safety Report 20233235 (Version 5)
Quarter: 2024Q3

REPORT INFORMATION
  Report Type: Spontaneous
  Country: US (occurrence: US)
  Receive Date: 20211227
  Receipt Date: 20240912
  Transmission Date: 20241016
  Serious: Yes (Other)
  Sender: PFIZER
  Company Number: US-PFIZER INC-202101540282

PATIENT
  Age: 70 Year
  Sex: Female

DRUGS (2)
  1. XELJANZ XR [Suspect]
     Active Substance: TOFACITINIB CITRATE
     Indication: Arthritis
     Dosage: 11 MG, DAILY
  2. XELJANZ XR [Suspect]
     Active Substance: TOFACITINIB CITRATE
     Dosage: 11 MG

REACTIONS (12)
  - Polyarthritis [Unknown]
  - Spinal operation [Unknown]
  - Condition aggravated [Unknown]
  - Temperature intolerance [Unknown]
  - Oral herpes [Unknown]
  - Spinal stenosis [Unknown]
  - Nerve compression [Unknown]
  - Gait disturbance [Unknown]
  - Oropharyngeal pain [Not Recovered/Not Resolved]
  - Seasonal allergy [Unknown]
  - Upper-airway cough syndrome [Unknown]
  - Dust allergy [Unknown]

NARRATIVE: CASE EVENT DATE: 20240101
